FAERS Safety Report 6749651-X (Version None)
Quarter: 2010Q2

REPORT INFORMATION
  Report Type: 
  Country: None (occurrence: None)
  Receive Date: 20100601
  Receipt Date: 20100519
  Transmission Date: 20101027
  Serious: Yes (Hospitalization)
  Sender: FDA-Public Use
  Company Number: B0653654A

PATIENT
  Sex: Female

DRUGS (5)
  1. LAMICTAL [Suspect]
     Indication: PHOSPHENES
     Route: 048
     Dates: start: 20100224, end: 20100406
  2. FLIXOTIDE [Concomitant]
  3. PREVISCAN [Concomitant]
  4. RHYTHMOL [Concomitant]
  5. ALPRAZOLAM [Concomitant]

REACTIONS (18)
  - ANAEMIA [None]
  - CHILLS [None]
  - DRUG RASH WITH EOSINOPHILIA AND SYSTEMIC SYMPTOMS [None]
  - EOSINOPHILIA [None]
  - FACE OEDEMA [None]
  - HEPATOCELLULAR INJURY [None]
  - HEPATOMEGALY [None]
  - HISTIOCYTOSIS HAEMATOPHAGIC [None]
  - HYPOCALCAEMIA [None]
  - INFLAMMATORY MARKER INCREASED [None]
  - LYMPHADENOPATHY [None]
  - MYELOCYTOSIS [None]
  - NECK PAIN [None]
  - OFF LABEL USE [None]
  - PARAESTHESIA [None]
  - PYREXIA [None]
  - RASH [None]
  - THYROID FUNCTION TEST ABNORMAL [None]
